FAERS Safety Report 10751867 (Version 1)
Quarter: 2015Q1

REPORT INFORMATION
  Report Type: Spontaneous
  Country: US (occurrence: US)
  Receive Date: 20150130
  Receipt Date: 20150130
  Transmission Date: 20150721
  Serious: No
  Sender: FDA-Public Use
  Company Number: US-ENDO PHARMACEUTICALS INC.-FORT20140102

PATIENT
  Sex: Male

DRUGS (3)
  1. ANDROGEL [Concomitant]
     Active Substance: TESTOSTERONE
     Indication: BLOOD TESTOSTERONE DECREASED
     Dosage: UNKNOWN
     Route: 061
     Dates: end: 2013
  2. ANTIHYPERTENSIVES [Concomitant]
     Active Substance: UNSPECIFIED INGREDIENT
     Indication: PROPHYLAXIS
     Dosage: LOW DOSE
     Route: 048
  3. FORTESTA [Suspect]
     Active Substance: TESTOSTERONE
     Indication: METABOLIC SYNDROME
     Route: 061
     Dates: start: 2013

REACTIONS (2)
  - Drug dose omission [Unknown]
  - Application site dryness [Unknown]

NARRATIVE: CASE EVENT DATE: 2013
